FAERS Safety Report 7481319-7 (Version None)
Quarter: 2011Q2

REPORT INFORMATION
  Report Type: 
  Country: None (occurrence: None)
  Receive Date: 20110512
  Receipt Date: 20110512
  Transmission Date: 20111010
  Serious: Yes (Death, Disabling)
  Sender: FDA-Public Use
  Company Number: None

PATIENT
  Age: 23 Year
  Sex: Male
  Weight: 82 kg

DRUGS (4)
  1. METHOTREXATE [Suspect]
     Indication: ACUTE LYMPHOCYTIC LEUKAEMIA
     Dosage: 6-15 MG INTRATHECAL
     Route: 037
     Dates: start: 20090801, end: 20100301
  2. METHOTREXATE [Suspect]
     Indication: NERVOUS SYSTEM DISORDER
     Dosage: 6-15 MG INTRATHECAL
     Route: 037
     Dates: start: 20090801, end: 20100301
  3. NELARABINE [Suspect]
     Indication: ACUTE LYMPHOCYTIC LEUKAEMIA
     Dosage: 1250 MG (650 MG/M2) IV DAILY X 5
     Route: 042
     Dates: start: 20100401, end: 20100501
  4. NELARABINE [Suspect]
     Indication: ACUTE LYMPHOCYTIC LEUKAEMIA
     Dosage: 1250 MG (650 MG/M2) IV DAILY X 5
     Route: 042
     Dates: start: 20100422, end: 20100426

REACTIONS (13)
  - NEUROTOXICITY [None]
  - HUMAN HERPESVIRUS 6 INFECTION [None]
  - LEUKOENCEPHALOPATHY [None]
  - STEM CELL TRANSPLANT [None]
  - MYELOPATHY [None]
  - GENERAL PHYSICAL HEALTH DETERIORATION [None]
  - ENCEPHALOPATHY [None]
  - AXONAL NEUROPATHY [None]
  - NEOPLASM PROGRESSION [None]
  - MENINGITIS STAPHYLOCOCCAL [None]
  - RADICULOPATHY [None]
  - LEUKAEMIC INFILTRATION BRAIN [None]
  - GUILLAIN-BARRE SYNDROME [None]
